FAERS Safety Report 9190100 (Version 1)
Quarter: 2013Q1

REPORT INFORMATION
  Report Type: Spontaneous
  Country: US (occurrence: US)
  Receive Date: 20130326
  Receipt Date: 20130326
  Transmission Date: 20140127
  Serious: No
  Sender: FDA-Public Use
  Company Number: US-PFIZER INC-2013096406

PATIENT
  Age: 36 Year
  Sex: Male
  Weight: 74.83 kg

DRUGS (2)
  1. CHANTIX [Suspect]
     Indication: SMOKING CESSATION THERAPY
     Dosage: 0.5 MG, 1X/DAY
     Route: 048
     Dates: start: 20130118, end: 2013
  2. CHANTIX [Suspect]
     Dosage: UNK
     Route: 048
     Dates: start: 2013, end: 2013

REACTIONS (9)
  - Gastrooesophageal reflux disease [Unknown]
  - Abdominal pain [Unknown]
  - Abdominal discomfort [Unknown]
  - Mean cell haemoglobin increased [Unknown]
  - Sinus bradycardia [Unknown]
  - Withdrawal syndrome [Recovering/Resolving]
  - Agitation [Recovering/Resolving]
  - Anger [Recovering/Resolving]
  - Mood swings [Recovering/Resolving]
